FAERS Safety Report 9859542 (Version 2)
Quarter: 2014Q1

REPORT INFORMATION
  Report Type: Spontaneous
  Country: MY (occurrence: MY)
  Receive Date: 20140131
  Receipt Date: 20140207
  Transmission Date: 20141002
  Serious: Yes (Hospitalization, Other)
  Sender: FDA-Public Use
  Company Number: MY-009507513-1401MYS013886

PATIENT
  Sex: Male
  Weight: 55 kg

DRUGS (6)
  1. JANUMET [Suspect]
     Dosage: UNK
     Route: 048
     Dates: start: 20101022, end: 20131010
  2. JANUMET [Suspect]
     Dosage: UNK
  3. ASPIRIN [Concomitant]
     Dosage: UNK
     Route: 048
  4. PLAVIX [Concomitant]
  5. NORVASC [Concomitant]
  6. ATORVASTATIN [Concomitant]

REACTIONS (4)
  - Liver abscess [Unknown]
  - Pancreatic abscess [Unknown]
  - Ileus paralytic [Unknown]
  - Pancreatitis acute [Recovered/Resolved]
